FAERS Safety Report 20451610 (Version 1)
Quarter: 2022Q1

REPORT INFORMATION
  Report Type: Spontaneous
  Country: US (occurrence: US)
  Receive Date: 20220209
  Receipt Date: 20220209
  Transmission Date: 20220423
  Serious: No
  Sender: FDA-Public Use
  Company Number: US-NOVARTISTESTPH-NVSC2021US075779

PATIENT
  Age: 66 Year
  Sex: Male

DRUGS (4)
  1. PATADAY [Suspect]
     Active Substance: OLOPATADINE HYDROCHLORIDE
     Indication: Product used for unknown indication
     Route: 065
  2. ZADITOR [Suspect]
     Active Substance: KETOTIFEN FUMARATE
     Indication: Product used for unknown indication
     Route: 065
  3. DUPILUMAB [Suspect]
     Active Substance: DUPILUMAB
     Indication: Eczema
     Dosage: 600 MG (LOADING DOSE)
     Route: 058
  4. DUPILUMAB [Suspect]
     Active Substance: DUPILUMAB
     Dosage: 300 MG (MAINITENANCE DOSE)
     Route: 058
     Dates: start: 20200512

REACTIONS (15)
  - Foreign body sensation in eyes [Unknown]
  - Asthma [Unknown]
  - Ocular hyperaemia [Unknown]
  - Lacrimation increased [Unknown]
  - Allergic reaction to excipient [Unknown]
  - Eye irritation [Unknown]
  - Gastrointestinal disorder [Unknown]
  - Condition aggravated [Unknown]
  - Gastrointestinal sounds abnormal [Unknown]
  - Flatulence [Unknown]
  - Diarrhoea [Unknown]
  - Eye disorder [Unknown]
  - Eye pruritus [Unknown]
  - Dry eye [Unknown]
  - Eye discharge [Unknown]

NARRATIVE: CASE EVENT DATE: 20200625
